FAERS Safety Report 14666420 (Version 3)
Quarter: 2018Q2

REPORT INFORMATION
  Report Type: Spontaneous
  Country: CN (occurrence: CN)
  Receive Date: 20180321
  Receipt Date: 20180406
  Transmission Date: 20180711
  Serious: Yes (Hospitalization, Other)
  Sender: FDA-Public Use
  Company Number: CN-ASTRAZENECA-2018SE33907

PATIENT
  Age: 0 Year
  Sex: Male
  Weight: 4.5 kg

DRUGS (1)
  1. BYETTA [Suspect]
     Active Substance: EXENATIDE
     Indication: POLYCYSTIC OVARIES
     Route: 064
     Dates: start: 2017, end: 20170518

REACTIONS (6)
  - Foetal exposure during pregnancy [Unknown]
  - Cardiac murmur [Unknown]
  - Foetal macrosomia [Recovered/Resolved]
  - Jaundice neonatal [Recovered/Resolved]
  - Respiratory tract infection [Recovering/Resolving]
  - Generalised erythema [Recovered/Resolved]

NARRATIVE: CASE EVENT DATE: 2018
